FAERS Safety Report 9147825 (Version 1)
Quarter: 2013Q1

REPORT INFORMATION
  Report Type: Spontaneous
  Country: US (occurrence: US)
  Receive Date: 20130307
  Receipt Date: 20130307
  Transmission Date: 20140127
  Serious: Yes (Other)
  Sender: FDA-Public Use
  Company Number: CHPA2013US003960

PATIENT
  Sex: Male
  Weight: 122.45 kg

DRUGS (2)
  1. EX-LAX MAX STR LAX PILLS SENNA [Suspect]
     Indication: WEIGHT DECREASED
     Dosage: 3-4 DF, BID
     Route: 048
     Dates: start: 20130222, end: 20130228
  2. EX-LAX MAX STR LAX PILLS SENNA [Suspect]
     Dosage: 2 DF, ONCE/SINGLE
     Route: 048
     Dates: start: 201302, end: 201302

REACTIONS (8)
  - Intentional drug misuse [Unknown]
  - Urine output increased [Not Recovered/Not Resolved]
  - Muscle spasms [Not Recovered/Not Resolved]
  - Bowel movement irregularity [Recovered/Resolved]
  - Off label use [Unknown]
  - Dehydration [Recovering/Resolving]
  - Therapeutic response decreased [Unknown]
  - Overdose [Unknown]
